FAERS Safety Report 16880213 (Version 2)
Quarter: 2019Q4

REPORT INFORMATION
  Report Type: Spontaneous
  Country: GB (occurrence: GB)
  Receive Date: 20191003
  Receipt Date: 20191231
  Transmission Date: 20200122
  Serious: Yes (Life-Threatening, Hospitalization, Other)
  Sender: FDA-Public Use
  Company Number: GB-ADVANZ PHARMA-201909000816

PATIENT

DRUGS (3)
  1. METHOTREXATE. [Suspect]
     Active Substance: METHOTREXATE
     Indication: MULTICENTRIC RETICULOHISTIOCYTOSIS
     Dosage: UNK
     Dates: start: 201509, end: 201604
  2. PREDNISOLONE. [Suspect]
     Active Substance: PREDNISOLONE
     Indication: MULTICENTRIC RETICULOHISTIOCYTOSIS
     Dosage: UNK
  3. HYDROXYCHLOROQUINE [Concomitant]
     Active Substance: HYDROXYCHLOROQUINE
     Indication: MULTICENTRIC RETICULOHISTIOCYTOSIS
     Dosage: UNK
     Dates: start: 201509, end: 201604

REACTIONS (1)
  - Zika virus infection [Unknown]

NARRATIVE: CASE EVENT DATE: 201604
